FAERS Safety Report 16870206 (Version 1)
Quarter: 2019Q3

REPORT INFORMATION
  Report Type: Spontaneous
  Country: US (occurrence: US)
  Receive Date: 20190930
  Receipt Date: 20190930
  Transmission Date: 20191005
  Serious: No
  Sender: FDA-Public Use
  Company Number: US-GE HEALTHCARE LIFE SCIENCES-2019CSU003378

PATIENT
  Age: 2 Year
  Sex: Female

DRUGS (2)
  1. ADREVIEW [Suspect]
     Active Substance: IOBENGUANE I-123
     Indication: DIAGNOSTIC PROCEDURE
     Dosage: UNK UNK, SINGLE
     Route: 065
     Dates: start: 20190620, end: 20190620
  2. ADREVIEW [Suspect]
     Active Substance: IOBENGUANE I-123
     Indication: NEUROBLASTOMA

REACTIONS (2)
  - Radioisotope scan abnormal [Recovered/Resolved]
  - No adverse event [Recovered/Resolved]

NARRATIVE: CASE EVENT DATE: 20190620
